FAERS Safety Report 9919847 (Version 1)
Quarter: 2014Q1

REPORT INFORMATION
  Report Type: Spontaneous
  Country: GB (occurrence: GB)
  Receive Date: 20140224
  Receipt Date: 20140224
  Transmission Date: 20141002
  Serious: Yes (Hospitalization)
  Sender: FDA-Public Use
  Company Number: PHFR2014GB001619

PATIENT
  Sex: Female

DRUGS (1)
  1. GLIVEC [Suspect]
     Dosage: UNK UKN, UNK

REACTIONS (7)
  - Liver disorder [Unknown]
  - Abdominal discomfort [Unknown]
  - Yellow skin [Unknown]
  - Gait disturbance [Unknown]
  - Bone pain [Unknown]
  - Nasopharyngitis [Unknown]
  - Pain in extremity [Unknown]
